FAERS Safety Report 25614760 (Version 1)
Quarter: 2025Q3

REPORT INFORMATION
  Report Type: Spontaneous
  Country: US (occurrence: US)
  Receive Date: 20250729
  Receipt Date: 20250729
  Transmission Date: 20251020
  Serious: Yes (Life-Threatening, Hospitalization)
  Sender: ACCORD
  Company Number: US-MLMSERVICE-20250710-PI574911-00049-1

PATIENT
  Age: 17 Year
  Sex: Female

DRUGS (1)
  1. AMITRIPTYLINE [Suspect]
     Active Substance: AMITRIPTYLINE
     Indication: Depression

REACTIONS (8)
  - Acute respiratory distress syndrome [Recovering/Resolving]
  - Respiratory failure [Recovering/Resolving]
  - Pulmonary embolism [Recovering/Resolving]
  - Right ventricular failure [Recovering/Resolving]
  - Pneumothorax [Recovering/Resolving]
  - Bronchopleural fistula [Recovering/Resolving]
  - Mental status changes [Recovering/Resolving]
  - Intentional overdose [Unknown]
